FAERS Safety Report 4559746-7 (Version None)
Quarter: 2005Q1

REPORT INFORMATION
  Report Type: 
  Country: None (occurrence: None)
  Receive Date: 20050114
  Receipt Date: 20040819
  Transmission Date: 20050727
  Serious: Yes (Hospitalization)
  Sender: FDA-Public Use
  Company Number: BDI-006355

PATIENT
  Age: 58 Year
  Sex: Female

DRUGS (2)
  1. PROHANCE [Suspect]
     Indication: NUCLEAR MAGNETIC RESONANCE IMAGING
     Dosage: 14 ML ONCE IV
     Route: 042
     Dates: start: 20040803, end: 20040803
  2. PROHANCE [Suspect]
     Indication: VISUAL DISTURBANCE
     Dosage: 14 ML ONCE IV
     Route: 042
     Dates: start: 20040803, end: 20040803

REACTIONS (1)
  - ANAPHYLACTOID REACTION [None]
